FAERS Safety Report 8566812 (Version 2)
Quarter: 2012Q4

REPORT INFORMATION
  Report Type: 
  Country: IN (occurrence: IN)
  Receive Date: 20120517
  Receipt Date: 20120913
  Transmission Date: 20130627
  Serious: Yes (Death, Other)
  Sender: FDA-Public Use
  Company Number: PHHY2012IN040355

PATIENT
  Age: 38 Year
  Sex: Female

DRUGS (1)
  1. SEBIVO [Suspect]
     Indication: HEPATITIS B
     Route: 048
     Dates: start: 201010

REACTIONS (4)
  - Death [Fatal]
  - Hepatitis [Not Recovered/Not Resolved]
  - Viral load increased [Not Recovered/Not Resolved]
  - Hepatitis B [None]
